FAERS Safety Report 7297956-9 (Version None)
Quarter: 2011Q1

REPORT INFORMATION
  Report Type: 
  Country: None (occurrence: None)
  Receive Date: 20110217
  Receipt Date: 20110125
  Transmission Date: 20110831
  Serious: Yes (Death)
  Sender: FDA-Public Use
  Company Number: US-TYCO HEALTHCARE/MALLINCKRODT-T201100230

PATIENT
  Age: 38 Year
  Sex: Female

DRUGS (10)
  1. RIZATRIPTAN [Suspect]
     Route: 048
  2. ACETAMINOPHEN AND HYDROCODONE BITARTRATE [Suspect]
     Route: 048
  3. DOXYLAMINE [Suspect]
     Route: 048
  4. DULOXETINE [Suspect]
     Route: 048
  5. BENZODIAZEPINE DERIVATIVES [Suspect]
     Route: 048
  6. DEXTROMETHORPHAN [Suspect]
     Route: 048
  7. ZOLPIDEM [Suspect]
     Route: 048
  8. DIAZEPAM [Suspect]
     Route: 048
  9. PREGABALIN [Suspect]
     Route: 048
  10. TOPIRAMATE [Suspect]
     Route: 048

REACTIONS (2)
  - CARDIO-RESPIRATORY ARREST [None]
  - COMPLETED SUICIDE [None]
